FAERS Safety Report 11155725 (Version 1)
Quarter: 2015Q2

REPORT INFORMATION
  Report Type: Other
  Country: GB (occurrence: GB)
  Receive Date: 20150602
  Receipt Date: 20150602
  Transmission Date: 20150821
  Serious: Yes (Hospitalization)
  Sender: FDA-Public Use
  Company Number: GB-MYLANLABS-2015M1016831

PATIENT

DRUGS (6)
  1. HYDROXYZINE [Concomitant]
     Active Substance: HYDROXYZINE\HYDROXYZINE HYDROCHLORIDE
     Dosage: 25 MG, BID
     Route: 048
  2. SALBUTAMOL [Concomitant]
     Active Substance: ALBUTEROL
     Dosage: 100MCG 2 PUFFS AS NEEDED.
     Route: 055
  3. OMEPRAZOLE. [Suspect]
     Active Substance: OMEPRAZOLE
     Dosage: 20 MG, BID
     Route: 048
     Dates: end: 20150402
  4. IBUPROFEN. [Concomitant]
     Active Substance: IBUPROFEN
     Dosage: APPLY THREE TIMES A DAY
  5. PARACETAMOL [Concomitant]
     Active Substance: ACETAMINOPHEN
     Dosage: 1G, FOUR TIMES A DAY, AS NECESSARY.
     Route: 048
  6. CODEINE [Concomitant]
     Active Substance: CODEINE
     Dosage: 30MG, FOUR TIMES A DAY AS NECESSARY.
     Route: 048

REACTIONS (2)
  - Inappropriate antidiuretic hormone secretion [Recovering/Resolving]
  - Hyponatraemia [Recovering/Resolving]

NARRATIVE: CASE EVENT DATE: 20150402
